FAERS Safety Report 18632852 (Version 1)
Quarter: 2020Q4

REPORT INFORMATION
  Report Type: Spontaneous
  Country: GB (occurrence: GB)
  Receive Date: 20201218
  Receipt Date: 20201218
  Transmission Date: 20210114
  Serious: Yes (Hospitalization)
  Sender: FDA-Public Use
  Company Number: GB-ACCORD-211022

PATIENT
  Age: 85 Year
  Sex: Female

DRUGS (6)
  1. SENNA ALEXANDRINA [Concomitant]
     Active Substance: SENNA LEAF
  2. BUPRENORPHINE. [Concomitant]
     Active Substance: BUPRENORPHINE
  3. LOSARTAN. [Concomitant]
     Active Substance: LOSARTAN
  4. FELODIPINE. [Concomitant]
     Active Substance: FELODIPINE
  5. PARACETAMOL [Concomitant]
     Active Substance: ACETAMINOPHEN
  6. HYDROXYCHLOROQUINE [Suspect]
     Active Substance: HYDROXYCHLOROQUINE
     Indication: RHEUMATOID ARTHRITIS
     Route: 048
     Dates: start: 20201116, end: 20201119

REACTIONS (4)
  - Confusional state [Recovering/Resolving]
  - Headache [Recovering/Resolving]
  - Decreased appetite [Recovering/Resolving]
  - Visual impairment [Recovering/Resolving]
